FAERS Safety Report 15569773 (Version 2)
Quarter: 2018Q4

REPORT INFORMATION
  Report Type: Spontaneous
  Country: US (occurrence: US)
  Receive Date: 20181031
  Receipt Date: 20181113
  Transmission Date: 20190205
  Serious: No
  Sender: FDA-Public Use
  Company Number: US-PFIZER INC-2018435282

PATIENT
  Age: 46 Year
  Sex: Female

DRUGS (6)
  1. CELONTIN [Suspect]
     Active Substance: METHSUXIMIDE
     Indication: SEIZURE
     Dosage: 900 MG, DAILY (ONE IN MORNING AND TWO AT NIGHT)
     Route: 048
  2. LORAZEPAM. [Concomitant]
     Active Substance: LORAZEPAM
     Indication: SEIZURE
     Dosage: 1 MG, AS NEEDED (ONE TABLET EVERY 8 HOURS AS NEEDED )
     Route: 048
  3. QUETIAPINE. [Concomitant]
     Active Substance: QUETIAPINE
     Dosage: 300 MG, DAILY (HALF A TABLET EVERY MORNING AND HALF A TABLET AT NOON AND THEN 2 TABLETS AT BEDTIME)
     Route: 048
  4. OMEPRAZOLE. [Concomitant]
     Active Substance: OMEPRAZOLE
     Indication: HYPERCHLORHYDRIA
     Dosage: 40 MG, 2X/DAY
     Route: 048
  5. NUEDEXTA [DEXTROMETHORPHAN HYDROBROMIDE;QUINIDINE SULFATE] [Concomitant]
     Dosage: UNK, 2X/DAY (DEXTROMETHORPHAN HYDROBROMIDE MONOHYDRATE 20 MG / QUINIDINE SULFATE 10 MG)
     Route: 048
  6. ATORVASTATIN [Concomitant]
     Active Substance: ATORVASTATIN
     Indication: BLOOD CHOLESTEROL INCREASED
     Dosage: 80 MG, 1X/DAY (ONE BY MOUTH AT BEDTIME)
     Route: 048

REACTIONS (3)
  - Product physical issue [Unknown]
  - Poor quality product administered [Unknown]
  - Drug ineffective [Unknown]
